FAERS Safety Report 24238319 (Version 1)
Quarter: 2024Q3

REPORT INFORMATION
  Report Type: Spontaneous
  Country: AU (occurrence: AU)
  Receive Date: 20240822
  Receipt Date: 20240822
  Transmission Date: 20241017
  Serious: Yes (Hospitalization)
  Sender: SANDOZ
  Company Number: AU-ELI_LILLY_AND_COMPANY-AU202406010936

PATIENT
  Age: 58 Year
  Sex: Male

DRUGS (3)
  1. OLANZAPINE [Suspect]
     Active Substance: OLANZAPINE
     Indication: Schizophrenia
     Dosage: 10 MG DAILY
     Route: 048
     Dates: start: 1999
  2. TRULICITY [Suspect]
     Active Substance: DULAGLUTIDE
     Indication: Type 2 diabetes mellitus
     Dosage: 1.5 MG, (PRE-FILLED PEN)
     Route: 065
     Dates: start: 202401
  3. MOBIC [Concomitant]
     Active Substance: MELOXICAM
     Indication: Product used for unknown indication
     Dosage: UNK
     Route: 065

REACTIONS (10)
  - Anxiety [Unknown]
  - Depression [Unknown]
  - Abdominal pain upper [Unknown]
  - Injection site pain [Recovered/Resolved]
  - Muscle spasms [Recovered/Resolved]
  - Musculoskeletal pain [Recovered/Resolved]
  - Sleep disorder due to general medical condition, insomnia type [Recovered/Resolved]
  - Back pain [Recovered/Resolved]
  - Somnolence [Unknown]
  - Weight increased [Unknown]

NARRATIVE: CASE EVENT DATE: 20240501
